FAERS Safety Report 15103537 (Version 1)
Quarter: 2018Q3

REPORT INFORMATION
  Report Type: Spontaneous
  Country: GB (occurrence: US)
  Receive Date: 20180703
  Receipt Date: 20180703
  Transmission Date: 20181010
  Serious: Yes (Other)
  Sender: FDA-Public Use
  Company Number: GB-JNJFOC-20180629114

PATIENT

DRUGS (2)
  1. TYLENOL [Suspect]
     Active Substance: ACETAMINOPHEN
     Indication: PRODUCT USED FOR UNKNOWN INDICATION
     Route: 065
  2. TYLENOL [Suspect]
     Active Substance: ACETAMINOPHEN
     Route: 065

REACTIONS (12)
  - Chronic obstructive pulmonary disease [Unknown]
  - Nausea [Unknown]
  - Hepatotoxicity [Unknown]
  - Lung disorder [Unknown]
  - Blood urine present [Unknown]
  - Product use issue [Unknown]
  - Haematochezia [Unknown]
  - Asthma [Unknown]
  - Stomatitis [Unknown]
  - Liver injury [Unknown]
  - Fatigue [Unknown]
  - Pyrexia [Unknown]
